FAERS Safety Report 20044290 (Version 3)
Quarter: 2025Q3

REPORT INFORMATION
  Report Type: Spontaneous
  Country: EU (occurrence: EU)
  Receive Date: 20211108
  Receipt Date: 20250717
  Transmission Date: 20251021
  Serious: Yes (Disabling, Other)
  Sender: TAKEDA
  Company Number: None

PATIENT
  Age: 5 Year
  Sex: Female
  Weight: 28 kg

DRUGS (3)
  1. ENTYVIO [Suspect]
     Active Substance: VEDOLIZUMAB
     Indication: Colitis ulcerative
     Dosage: 300 MILLIGRAM, Q4WEEKS
     Dates: start: 20180427, end: 20190617
  2. Salofalk [Concomitant]
  3. Imurel [Concomitant]
     Dates: start: 20171212, end: 20180716

REACTIONS (1)
  - Tubulointerstitial nephritis [Recovered/Resolved with Sequelae]

NARRATIVE: CASE EVENT DATE: 20180701
